FAERS Safety Report 7850852-8 (Version None)
Quarter: 2011Q4

REPORT INFORMATION
  Report Type: 
  Country: None (occurrence: None)
  Receive Date: 20111021
  Receipt Date: 20111010
  Transmission Date: 20120403
  Serious: Yes (Other)
  Sender: FDA-Public Use
  Company Number: 1077037

PATIENT
  Age: 53 Year

DRUGS (3)
  1. FLUOROURACIL [Suspect]
     Indication: BREAST CANCER
  2. METHOTREXATE [Suspect]
     Indication: BREAST CANCER
  3. CYCLOPHOSPHAMIDE [Suspect]
     Indication: BREAST CANCER

REACTIONS (2)
  - ARTERIAL THROMBOSIS [None]
  - PERIPHERAL ISCHAEMIA [None]
